FAERS Safety Report 10021303 (Version 1)
Quarter: 2014Q1

REPORT INFORMATION
  Report Type: Spontaneous
  Country: NL (occurrence: NL)
  Receive Date: 20140319
  Receipt Date: 20140319
  Transmission Date: 20141002
  Serious: Yes (Other)
  Sender: FDA-Public Use
  Company Number: NL-MYLANLABS-2014S1005162

PATIENT
  Age: 67 Year
  Sex: Male

DRUGS (1)
  1. IBUPROFEN [Suspect]
     Indication: RHEUMATOID ARTHRITIS
     Route: 065

REACTIONS (1)
  - Gastrointestinal disorder [Recovered/Resolved]
